FAERS Safety Report 7450608-4 (Version None)
Quarter: 2011Q2

REPORT INFORMATION
  Report Type: 
  Country: None (occurrence: None)
  Receive Date: 20110429
  Receipt Date: 20110429
  Transmission Date: 20111010
  Serious: Yes (Other)
  Sender: FDA-Public Use
  Company Number: None

PATIENT
  Sex: Male
  Weight: 87.0906 kg

DRUGS (2)
  1. MULTAQ [Suspect]
     Indication: PRODUCT USED FOR UNKNOWN INDICATION
     Dosage: 2 DAILY
     Dates: start: 20110201, end: 20110301
  2. MULTAQ [Suspect]
     Indication: ATRIAL FIBRILLATION
     Dosage: 2 DAILY
     Dates: start: 20110201, end: 20110301

REACTIONS (1)
  - FEELING ABNORMAL [None]
